FAERS Safety Report 17750970 (Version 1)
Quarter: 2020Q2

REPORT INFORMATION
  Report Type: Spontaneous
  Country: CN (occurrence: CN)
  Receive Date: 20200506
  Receipt Date: 20200506
  Transmission Date: 20200714
  Serious: Yes (Death, Other)
  Sender: FDA-Public Use
  Company Number: CN-PFIZER INC-2020179565

PATIENT
  Age: 46 Year
  Sex: Female

DRUGS (5)
  1. PREDNISONE. [Suspect]
     Active Substance: PREDNISONE
     Indication: CHEMOTHERAPY
     Dosage: 100 MG (DAYS 1-5)
     Route: 048
     Dates: start: 20161028
  2. VINDESINE [Suspect]
     Active Substance: VINDESINE
     Indication: CHEMOTHERAPY
     Dosage: 2 MG (DAY 1)
     Route: 041
     Dates: start: 20161028
  3. CYCLOPHOSPHAMIDE. [Suspect]
     Active Substance: CYCLOPHOSPHAMIDE
     Indication: CHEMOTHERAPY
     Dosage: 1200 MG (DAY 1)
     Route: 041
     Dates: start: 20161028
  4. NIFEDIPINE. [Concomitant]
     Active Substance: NIFEDIPINE
     Indication: HYPERTENSION
     Dosage: UNK
  5. EPIRUBICIN HCL [Suspect]
     Active Substance: EPIRUBICIN HYDROCHLORIDE
     Indication: CHEMOTHERAPY
     Dosage: 120 MG (DAY 1)
     Route: 041
     Dates: start: 20161028

REACTIONS (4)
  - Heart injury [Fatal]
  - Coagulopathy [Fatal]
  - Bone marrow failure [Fatal]
  - Factor I deficiency [Fatal]

NARRATIVE: CASE EVENT DATE: 2016
